FAERS Safety Report 24702432 (Version 1)
Quarter: 2024Q4

REPORT INFORMATION
  Report Type: Spontaneous
  Country: US (occurrence: None)
  Receive Date: 20241205
  Receipt Date: 20241205
  Transmission Date: 20250115
  Serious: Yes (Other)
  Sender: Public
  Company Number: None

PATIENT
  Sex: Female

DRUGS (2)
  1. BOTOX [Suspect]
     Active Substance: ONABOTULINUMTOXINA
     Indication: Migraine without aura
     Dosage: OTHER FREQUENCY : EVERY12WEEKS ;?
     Route: 058
     Dates: start: 20210323
  2. OXYCOD/APAP TAB 7.5-325 [Concomitant]

REACTIONS (1)
  - Therapeutic product effect decreased [None]
